FAERS Safety Report 10020810 (Version 2)
Quarter: 2014Q3

REPORT INFORMATION
  Report Type: Spontaneous
  Country: JP (occurrence: None)
  Receive Date: 20131203
  Receipt Date: 20140709
  Transmission Date: 20150326
  Serious: Yes (Congenital Anomaly)
  Sender: FDA-Public Use
  Company Number: JP-20130095

PATIENT
  Age: 5 Day
  Sex: Female

DRUGS (1)
  1. LIPIODOL ULTRA FLUID [Suspect]
     Active Substance: ETHIODIZED OIL
     Indication: FOETAL EXPOSURE TIMING UNSPECIFIED
     Route: 064

REACTIONS (2)
  - Maternal exposure before pregnancy [None]
  - Hypothyroidism [None]

NARRATIVE: CASE EVENT DATE: 20130315
